FAERS Safety Report 4289464-4 (Version None)
Quarter: 2004Q1

REPORT INFORMATION
  Report Type: 
  Country: None (occurrence: None)
  Receive Date: 20040206
  Receipt Date: 20040206
  Transmission Date: 20041129
  Serious: No
  Sender: FDA-Public Use
  Company Number: None

PATIENT
  Age: 59 Year
  Sex: Male
  Weight: 80.9 kg

DRUGS (11)
  1. NATRECOR [Suspect]
     Indication: CARDIAC FAILURE CONGESTIVE
     Dosage: 2.5 MCG /KG BOLUS IV . 0.01 MCG/KG MIN IV
     Route: 040
     Dates: start: 20031215, end: 20031215
  2. PREDNISONE [Concomitant]
  3. FUROSEMIDE [Concomitant]
  4. AZATHIPRINE [Concomitant]
  5. METFORMIN HCL [Concomitant]
  6. SIMVASTATIN [Concomitant]
  7. CEFOTAXIME [Concomitant]
  8. FOLIC ACID [Concomitant]
  9. CYANOCOBALAMIN [Concomitant]
  10. DIGOXIN [Concomitant]
  11. VIT B12 [Concomitant]

REACTIONS (1)
  - HYPOTENSION [None]
